FAERS Safety Report 8902640 (Version 2)
Quarter: 2012Q4

REPORT INFORMATION
  Report Type: 
  Country: CN (occurrence: CN)
  Receive Date: 20121112
  Receipt Date: 20121126
  Transmission Date: 20130627
  Serious: Yes (Other)
  Sender: FDA-Public Use
  Company Number: CN-BAYER-2012-117703

PATIENT
  Age: 53 Year
  Sex: Male

DRUGS (2)
  1. SORAFENIB (RAF KINASE INHIBITOR) [Suspect]
     Dosage: 400 mg, BID
     Route: 048
     Dates: start: 20121015, end: 20121104
  2. SORAFENIB (RAF KINASE INHIBITOR) [Suspect]
     Dosage: 400 mg, BID
     Route: 048
     Dates: start: 20121113

REACTIONS (1)
  - Thrombocytopenia [Recovering/Resolving]
